FAERS Safety Report 9289184 (Version 1)
Quarter: 2013Q2

REPORT INFORMATION
  Report Type: Spontaneous
  Country: US (occurrence: US)
  Receive Date: 20130514
  Receipt Date: 20130514
  Transmission Date: 20140414
  Serious: Yes (Other)
  Sender: FDA-Public Use
  Company Number: US-TEVA-404699USA

PATIENT
  Age: 73 Year
  Sex: Male

DRUGS (1)
  1. METFORMIN [Suspect]
     Dosage: 1000 MILLIGRAM DAILY;

REACTIONS (3)
  - Bladder cancer [Unknown]
  - Bladder cancer recurrent [Unknown]
  - Haemorrhage [Unknown]
